FAERS Safety Report 7224522-3 (Version None)
Quarter: 2011Q1

REPORT INFORMATION
  Report Type: 
  Country: None (occurrence: None)
  Receive Date: 20110113
  Receipt Date: 20110111
  Transmission Date: 20110831
  Serious: No
  Sender: FDA-Public Use
  Company Number: US-PFIZER INC-2011007258

PATIENT
  Sex: Female

DRUGS (2)
  1. EFFEXOR XR [Suspect]
     Dosage: 150 MG, 1X/DAY
     Route: 048
     Dates: end: 20101229
  2. EFFEXOR XR [Suspect]
     Indication: DEPRESSION
     Dosage: 75 MG, 1X/DAY
     Route: 048
     Dates: start: 20000101

REACTIONS (7)
  - NAUSEA [None]
  - DRUG WITHDRAWAL SYNDROME [None]
  - VOMITING [None]
  - NASOPHARYNGITIS [None]
  - HYPERHIDROSIS [None]
  - CHILLS [None]
  - HEADACHE [None]
